FAERS Safety Report 19834664 (Version 1)
Quarter: 2021Q3

REPORT INFORMATION
  Report Type: Other
  Country: US (occurrence: US)
  Receive Date: 20210915
  Receipt Date: 20210915
  Transmission Date: 20211014
  Serious: No
  Sender: FDA-Public Use
  Company Number: US-LEADIANT BIOSCIENCES INC-2020STPI000411

PATIENT
  Sex: Female

DRUGS (20)
  1. ONDANSETRON [ONDANSETRON HYDROCHLORIDE] [Concomitant]
     Active Substance: ONDANSETRON HYDROCHLORIDE
     Indication: NAUSEA
     Dosage: TAKE 1 TABLET BY MOUTH EVERY 8 TO 12 HOURS AS NEEDED
     Dates: start: 20200817
  2. OXCARBAZEPINE. [Concomitant]
     Active Substance: OXCARBAZEPINE
     Dosage: TAKE 1 TABLET BY MOUTH TWICE DAILY
     Dates: start: 20200714
  3. GLEOSTINE [Concomitant]
     Active Substance: LOMUSTINE
  4. ALPROZOLAM [Concomitant]
     Active Substance: ALPRAZOLAM
     Dosage: ONE TABLET BY MOUTH 1 HOUR PRIOR TO MRI
     Route: 048
     Dates: start: 20191113
  5. HYDROCODONE/ACETAMINOPHEN [Concomitant]
     Active Substance: ACETAMINOPHEN\HYDROCODONE
     Dosage: TAKE ONE TABLET BY MOUTH EVERY SIX HOURS AS NEEDED FOR PAIN
     Dates: start: 20200623
  6. TOPIRAMATE. [Concomitant]
     Active Substance: TOPIRAMATE
     Dosage: TAKE 1 TABLET BY MOUTH TWICE DAILY
     Route: 048
     Dates: start: 20200927
  7. ALBUTEROL HFA [Concomitant]
     Active Substance: ALBUTEROL SULFATE
     Indication: WHEEZING
     Dosage: INHALE 1 TO 2 PUFFS BY MOUTH EVERY 4 HOURS AS NEEDED
     Dates: start: 20200730
  8. VIMPAT [Concomitant]
     Active Substance: LACOSAMIDE
     Dosage: TAKE 2 TABLETS BY MOUTH TWICE DAILY
     Route: 048
     Dates: start: 20200831
  9. ALBUTEROL HFA [Concomitant]
     Active Substance: ALBUTEROL SULFATE
     Indication: DYSPNOEA
     Dosage: UNK
  10. ELIQUIS [Concomitant]
     Active Substance: APIXABAN
     Dosage: TAKE 2 TABLETS BY MOUTH TWICE DAILY FOR 1 WEEK
     Dates: start: 20200727
  11. OXYCODONE AND ACETAMINOPHEN [Concomitant]
     Active Substance: ACETAMINOPHEN\OXYCODONE HYDROCHLORIDE
     Dosage: TAKE 1 TO 2 TABLETS BY MOUTH EVERY 4 TO 6 HOURS AS NEEDED
     Dates: start: 20191208
  12. MATULANE [Suspect]
     Active Substance: PROCARBAZINE HYDROCHLORIDE
     Indication: BRAIN NEOPLASM MALIGNANT
     Dosage: 100 MG ON DAYS 8?21 OF 42 DAY CYCLE
     Dates: start: 20200901
  13. CLONAZEPAM. [Concomitant]
     Active Substance: CLONAZEPAM
  14. DEXAMETHASONE. [Concomitant]
     Active Substance: DEXAMETHASONE
     Dosage: TAKE 1 TABLET BY MOUTH EVERY 6 HOURS FOR 4 DAYS, THEN TAPER AS DIRECTED
     Route: 048
     Dates: start: 20200629
  15. LEVETIRACETAM. [Concomitant]
     Active Substance: LEVETIRACETAM
     Dosage: TAKE 2 AND HALF TABLETS BY MOUTH TWICE DAILY
     Dates: start: 20200927
  16. PROCHLORPERAZINE. [Concomitant]
     Active Substance: PROCHLORPERAZINE
     Indication: NAUSEA
     Dosage: TAKE 1 TABLET BY MOUTH EVERY 6 HOURS AS NEEDED
     Route: 048
     Dates: start: 20200817
  17. TRAMADOL. [Concomitant]
     Active Substance: TRAMADOL
     Indication: PAIN
     Dosage: TAKE 1  TABLET BY MOUTH EVERY 6 HOURS AS NEEDED
     Route: 048
     Dates: start: 20200730
  18. EMEND [Concomitant]
     Active Substance: APREPITANT
  19. ONDANSETRON [ONDANSETRON HYDROCHLORIDE] [Concomitant]
     Active Substance: ONDANSETRON HYDROCHLORIDE
     Indication: VOMITING
  20. SYMBICORT [Concomitant]
     Active Substance: BUDESONIDE\FORMOTEROL FUMARATE DIHYDRATE
     Dosage: INHALE 2 PUFFS BY MOUTH TWICE DAILY
     Dates: start: 20200417

REACTIONS (3)
  - Vomiting [Not Recovered/Not Resolved]
  - Diarrhoea [Not Recovered/Not Resolved]
  - Nausea [Not Recovered/Not Resolved]
